FAERS Safety Report 23114399 (Version 1)
Quarter: 2023Q4

REPORT INFORMATION
  Report Type: Spontaneous
  Country: IR (occurrence: IR)
  Receive Date: 20231027
  Receipt Date: 20231027
  Transmission Date: 20240109
  Serious: Yes (Hospitalization, Other)
  Sender: FDA-Public Use
  Company Number: IR-MLMSERVICE-20231013-4603042-1

PATIENT

DRUGS (6)
  1. ETOPOSIDE [Suspect]
     Active Substance: ETOPOSIDE
     Indication: Teratoma
     Dosage: UNK (FOUR COURSES OF BEP REGIMEN)
     Route: 065
  2. ETOPOSIDE [Suspect]
     Active Substance: ETOPOSIDE
     Indication: Endometriosis
  3. BLEOMYCIN SULFATE [Suspect]
     Active Substance: BLEOMYCIN SULFATE
     Indication: Teratoma
     Dosage: UNK (FOUR COURSES OF BEP REGIMEN)
     Route: 065
  4. BLEOMYCIN SULFATE [Suspect]
     Active Substance: BLEOMYCIN SULFATE
     Indication: Endometriosis
  5. CISPLATIN [Suspect]
     Active Substance: CISPLATIN
     Indication: Teratoma
     Dosage: UNK (FOUR COURSES OF BEP REGIMEN)
     Route: 065
  6. CISPLATIN [Suspect]
     Active Substance: CISPLATIN
     Indication: Endometriosis

REACTIONS (2)
  - Neuropathy peripheral [Unknown]
  - Infection [Unknown]
